FAERS Safety Report 18574201 (Version 2)
Quarter: 2021Q3

REPORT INFORMATION
  Report Type: Report from Study
  Country: RO (occurrence: RO)
  Receive Date: 20201203
  Receipt Date: 20210702
  Transmission Date: 20211014
  Serious: Yes (Hospitalization, Other)
  Sender: FDA-Public Use
  Company Number: RO-GILEAD-2020-0506341

PATIENT
  Age: 66 Year
  Sex: Female

DRUGS (5)
  1. LAGOSA [Concomitant]
     Active Substance: DIETARY SUPPLEMENT\HERBALS\MILK THISTLE
  2. SARGENOR [Concomitant]
     Active Substance: ARGININE ASPARTATE
  3. ESENTIN FORTE [Concomitant]
  4. LEDIPASVIR/SOFOSBUVIR [Suspect]
     Active Substance: LEDIPASVIR\SOFOSBUVIR
     Indication: CHRONIC HEPATITIS C
     Dosage: 1 DOSAGE FORM, QD
     Route: 048
     Dates: start: 20200627
  5. URSOFALK [Concomitant]
     Active Substance: URSODIOL

REACTIONS (2)
  - Cervix carcinoma [Not Recovered/Not Resolved]
  - Product use issue [Recovered/Resolved]

NARRATIVE: CASE EVENT DATE: 2020
